FAERS Safety Report 8116388-4 (Version None)
Quarter: 2012Q1

REPORT INFORMATION
  Report Type: 
  Country: None (occurrence: None)
  Receive Date: 20120206
  Receipt Date: 20120125
  Transmission Date: 20120608
  Serious: Yes (Hospitalization)
  Sender: FDA-Public Use
  Company Number: CH-GLAXOSMITHKLINE-B0779296A

PATIENT
  Age: 89 Year
  Sex: Female

DRUGS (16)
  1. ASPIRIN [Suspect]
     Route: 048
  2. OXYCONTIN [Suspect]
     Dosage: 2TAB PER DAY
     Route: 048
  3. MIACALCIN [Suspect]
     Dosage: 2SPR PER DAY
     Route: 045
  4. MOVIPREP [Suspect]
     Dosage: 1SAC PER DAY
     Route: 048
  5. FRAGMIN [Suspect]
     Dosage: 5000UNIT PER DAY
     Route: 058
  6. POTASSIUM CHLORIDE [Suspect]
     Indication: HYPOKALAEMIA
     Dosage: 6CAP PER DAY
     Route: 048
  7. ACETAMINOPHEN [Suspect]
     Dosage: 3G PER DAY
     Route: 048
  8. METOPROLOL [Suspect]
     Route: 048
  9. ATACAND [Suspect]
     Route: 048
  10. AMLODIPINE [Suspect]
     Route: 048
  11. CALCIMAGON [Suspect]
     Dosage: 2TAB PER DAY
     Route: 048
  12. MAG 2 [Suspect]
     Route: 048
  13. METOCLOPRAMIDE HYDROCHLORIDE [Suspect]
     Indication: VOMITING
     Dosage: 10MG THREE TIMES PER DAY
     Route: 048
  14. REQUIP [Suspect]
     Dosage: .5MG THREE TIMES PER DAY
     Route: 048
  15. CHOLECALCIFEROL [Suspect]
     Dosage: 10DROP PER DAY
     Route: 048
  16. ZOLPIDEM [Suspect]
     Dosage: .5TAB AT NIGHT
     Route: 048

REACTIONS (16)
  - PSYCHOMOTOR RETARDATION [None]
  - VOMITING [None]
  - DRUG INTERACTION [None]
  - ASTHENIA [None]
  - HYPOKINESIA [None]
  - DYSARTHRIA [None]
  - CHILLS [None]
  - DYSGRAPHIA [None]
  - DELIRIUM [None]
  - MOBILITY DECREASED [None]
  - GENERAL PHYSICAL HEALTH DETERIORATION [None]
  - ABDOMINAL DISCOMFORT [None]
  - CEREBRAL ATROPHY [None]
  - HYPOKALAEMIA [None]
  - MOVEMENT DISORDER [None]
  - HYPERTONIA [None]
